FAERS Safety Report 4324817-7 (Version None)
Quarter: 2004Q1

REPORT INFORMATION
  Report Type: 
  Country: None (occurrence: None)
  Receive Date: 20040323
  Receipt Date: 20040310
  Transmission Date: 20041129
  Serious: Yes (Death, Hospitalization)
  Sender: FDA-Public Use
  Company Number: 2004-01070

PATIENT
  Age: 49 Year
  Sex: Female

DRUGS (8)
  1. RANITIDINE HYDROCHLORIDE (WATSON LABORATORIES) (RANITIDINE HYDROCHLORI [Suspect]
     Indication: SEPSIS
     Dates: start: 20000401
  2. LOVASTATIN [Suspect]
     Indication: DYSLIPIDAEMIA
     Dosage: 20 MG, DAILY, ORAL
     Route: 048
     Dates: start: 20000301
  3. CALCITONIN (CALCITONIN) [Concomitant]
  4. CALCIUM CARBONATE (CALCIUM CARBONATE) [Concomitant]
  5. CILASTATIN SODIUM W/IMIPENEM (IMIPENEM, CILASTATIN SODIUM) [Concomitant]
  6. VANCOMYCIN [Concomitant]
  7. DOPAMINE HCL [Concomitant]
  8. THYROXIN [Concomitant]

REACTIONS (1)
  - PANCREATITIS NECROTISING [None]
